FAERS Safety Report 16075632 (Version 1)
Quarter: 2019Q1

REPORT INFORMATION
  Report Type: Spontaneous
  Country: US (occurrence: US)
  Receive Date: 20190315
  Receipt Date: 20190315
  Transmission Date: 20190418
  Serious: No
  Sender: FDA-Public Use
  Company Number: US-TEVA-2019-US-1017425

PATIENT
  Age: 42 Year
  Sex: Female

DRUGS (1)
  1. CINQAIR [Suspect]
     Active Substance: RESLIZUMAB
     Dosage: 253 MG EVERY 4 WEEKS
     Route: 042
     Dates: start: 20190213

REACTIONS (4)
  - Headache [Unknown]
  - Nausea [Unknown]
  - Nervousness [Unknown]
  - Inappropriate schedule of product administration [Unknown]

NARRATIVE: CASE EVENT DATE: 20190213
